FAERS Safety Report 8513080-9 (Version None)
Quarter: 2012Q3

REPORT INFORMATION
  Report Type: 
  Country: None (occurrence: None)
  Receive Date: 20120716
  Receipt Date: 20080619
  Transmission Date: 20120928
  Serious: Yes (Other)
  Sender: FDA-Public Use
  Company Number: CO-PFIZER INC-2012169440

PATIENT
  Age: 80 Year
  Sex: Male

DRUGS (7)
  1. NORVASC [Suspect]
     Dosage: 5 MG, 1X/DAY
     Route: 065
  2. LIPITOR [Suspect]
     Dosage: 10 MG, 1X/DAY
  3. OLMESARTAN MEDOXOMIL [Suspect]
     Dosage: 20 MG, 1X/DAY
  4. CIPROFLOXACIN [Concomitant]
     Dosage: 500 MG, 2X/DAY
     Route: 065
  5. NORVASC [Suspect]
     Dosage: 10 MG, 1X/DAY
  6. ACCUPRIL [Suspect]
     Dosage: 20 MG, 1X/DAY
  7. LOSARTAN [Concomitant]
     Dosage: 50 MG, 2X/DAY
     Route: 065

REACTIONS (7)
  - DYSPNOEA [None]
  - HAEMATURIA [None]
  - DYSURIA [None]
  - PYURIA [None]
  - RENAL FAILURE CHRONIC [None]
  - URINARY TRACT INFECTION [None]
  - CHEST PAIN [None]
